FAERS Safety Report 4423690-6 (Version None)
Quarter: 2004Q3

REPORT INFORMATION
  Report Type: 
  Country: None (occurrence: None)
  Receive Date: 20040805
  Receipt Date: 20040723
  Transmission Date: 20050211
  Serious: Yes (Hospitalization)
  Sender: FDA-Public Use
  Company Number: 2004042292

PATIENT
  Age: 33 Year
  Sex: Male

DRUGS (2)
  1. ZITHROMAX [Suspect]
     Indication: NASOPHARYNGITIS
     Dosage: 2 IN 1 D, ORAL
     Route: 048
     Dates: start: 20040413, end: 20040416
  2. IBUPROFEN [Suspect]
     Indication: NASOPHARYNGITIS
     Dosage: ORAL
     Route: 048
     Dates: start: 20040413, end: 20040416

REACTIONS (11)
  - ANTINUCLEAR ANTIBODY POSITIVE [None]
  - BILIARY DILATATION [None]
  - CHOLANGITIS [None]
  - CYTOLYTIC HEPATITIS [None]
  - GALLBLADDER DISORDER [None]
  - HEPATITIS CHOLESTATIC [None]
  - HYPOALBUMINAEMIA [None]
  - IMMUNOGLOBULINS ABNORMAL [None]
  - PROTHROMBIN LEVEL DECREASED [None]
  - PRURITUS [None]
  - URTICARIA [None]
